FAERS Safety Report 9297925 (Version 3)
Quarter: 2013Q2

REPORT INFORMATION
  Report Type: Spontaneous
  Country: US (occurrence: None)
  Receive Date: 20130515
  Receipt Date: 20130612
  Transmission Date: 20140414
  Serious: Yes (Other)
  Sender: FDA-Public Use
  Company Number: JPI-P-031618

PATIENT
  Age: 15 Year
  Sex: Female

DRUGS (1)
  1. XYREM [Suspect]
     Indication: PAIN
     Dosage: 6GM (3GM, 2 IN 1 D), ORAL
     Route: 048
     Dates: start: 20130405, end: 201304

REACTIONS (4)
  - Nausea [None]
  - Ehlers-Danlos syndrome [None]
  - Vomiting [None]
  - Condition aggravated [None]
